FAERS Safety Report 11352825 (Version 1)
Quarter: 2015Q3

REPORT INFORMATION
  Report Type: Spontaneous
  Country: US (occurrence: US)
  Receive Date: 20150807
  Receipt Date: 20150807
  Transmission Date: 20151125
  Serious: No
  Sender: FDA-Public Use
  Company Number: US-JNJFOC-20150107312

PATIENT
  Age: 67 Year
  Sex: Female
  Weight: 46.27 kg

DRUGS (5)
  1. WOMENS ROGAINE [Suspect]
     Active Substance: MINOXIDIL
     Indication: ALOPECIA
     Dosage: HALF A CAPFUL
     Route: 061
     Dates: start: 20141203, end: 20150108
  2. MULTIVITAMINS [Concomitant]
     Active Substance: VITAMINS
     Indication: VITAMIN SUPPLEMENTATION
     Dosage: 1 OR MORE TIMES DAILY, MANY YEARS
     Route: 065
  3. LEVOTHYROXINE. [Concomitant]
     Active Substance: LEVOTHYROXINE
     Indication: THYROID DISORDER
     Dosage: 37.5 MCG, LESS THAN A MONTH
     Route: 065
     Dates: start: 20141230
  4. WOMENS ROGAINE [Suspect]
     Active Substance: MINOXIDIL
     Route: 061
  5. IRON SUPPLEMENT [Concomitant]
     Active Substance: IRON
     Indication: BLOOD IRON DECREASED
     Dosage: LESS THAN A MONTH
     Route: 065
     Dates: start: 20141229

REACTIONS (1)
  - Trichorrhexis [Not Recovered/Not Resolved]
